FAERS Safety Report 6600367-X (Version None)
Quarter: 2010Q1

REPORT INFORMATION
  Report Type: 
  Country: None (occurrence: None)
  Receive Date: 20100224
  Receipt Date: 20100215
  Transmission Date: 20100710
  Serious: Yes (Hospitalization)
  Sender: FDA-Public Use
  Company Number: JP-AMGEN-US388232

PATIENT
  Sex: Female
  Weight: 61 kg

DRUGS (6)
  1. ENBREL [Suspect]
     Indication: RHEUMATOID ARTHRITIS
     Route: 058
     Dates: start: 20091202, end: 20100112
  2. PROGRAF [Suspect]
     Indication: RHEUMATOID ARTHRITIS
     Route: 048
     Dates: start: 20040401, end: 20100119
  3. PARIET [Concomitant]
     Indication: REFLUX OESOPHAGITIS
     Route: 048
     Dates: start: 20090811, end: 20100118
  4. CLARITIN [Concomitant]
     Indication: PRURITUS
     Route: 048
     Dates: end: 20100118
  5. PREDNISOLONE [Concomitant]
     Indication: RHEUMATOID ARTHRITIS
     Route: 048
     Dates: end: 20100118
  6. PREDNISOLONE [Concomitant]
     Route: 048
     Dates: end: 20100119

REACTIONS (1)
  - PNEUMONIA [None]
